FAERS Safety Report 4354237-0 (Version None)
Quarter: 2004Q2

REPORT INFORMATION
  Report Type: 
  Country: None (occurrence: None)
  Receive Date: 20040506
  Receipt Date: 20040424
  Transmission Date: 20050107
  Serious: Yes (Other)
  Sender: FDA-Public Use
  Company Number: M20646

PATIENT
  Age: 37 Year
  Sex: Female

DRUGS (7)
  1. AMOXICILLIN [Suspect]
     Indication: LOWER RESPIRATORY TRACT INFECTION
     Dosage: 500MG PER DAY
     Route: 065
     Dates: start: 20040105
  2. CODEINE PHOSPHATE [Suspect]
     Indication: PAIN
     Dosage: 15MG PER DAY
     Route: 065
  3. ERYTHROMYCIN [Suspect]
     Indication: LOWER RESPIRATORY TRACT INFECTION
     Dosage: 500MG PER DAY
     Route: 065
  4. CLARITHROMYCIN [Suspect]
     Dosage: 500MG PER DAY
     Route: 065
  5. DEPO-PROVERA [Suspect]
     Indication: CONTRACEPTION
     Route: 030
     Dates: start: 20030401, end: 20030101
  6. BENDROFLUAZIDE [Concomitant]
     Route: 065
  7. ENALAPRIL MALEATE [Concomitant]
     Route: 065

REACTIONS (3)
  - LOBAR PNEUMONIA [None]
  - PULMONARY EMBOLISM [None]
  - UPPER RESPIRATORY TRACT INFECTION [None]
